FAERS Safety Report 8034269-1 (Version None)
Quarter: 2012Q1

REPORT INFORMATION
  Report Type: 
  Country: None (occurrence: None)
  Receive Date: 20120110
  Receipt Date: 20120105
  Transmission Date: 20120608
  Serious: Yes (Death, Other)
  Sender: FDA-Public Use
  Company Number: PHHY2011NL114633

PATIENT
  Sex: Male

DRUGS (3)
  1. ZOMETA [Suspect]
     Indication: METASTASIS
     Dosage: 4 MG/100ML ONCE PER 21 DAYS
     Dates: start: 20110317
  2. ZOMETA [Suspect]
     Dosage: 4 MG/100ML ONCE PER 21 DAYS
     Dates: start: 20111219
  3. ZOMETA [Suspect]
     Dosage: 4 MG/100ML ONCE PER 21 DAYS
     Dates: start: 20111128

REACTIONS (2)
  - DEATH [None]
  - GENERAL PHYSICAL HEALTH DETERIORATION [None]
